FAERS Safety Report 20351019 (Version 1)
Quarter: 2022Q1

REPORT INFORMATION
  Report Type: Spontaneous
  Country: US (occurrence: US)
  Receive Date: 20220119
  Receipt Date: 20220119
  Transmission Date: 20220423
  Serious: Yes (Life-Threatening, Hospitalization)
  Sender: FDA-Public Use
  Company Number: US-KOREA IPSEN Pharma-2022-01223

PATIENT
  Age: 26 Year
  Sex: Female
  Weight: 56.24 kg

DRUGS (1)
  1. DYSPORT [Suspect]
     Active Substance: ABOBOTULINUMTOXINA
     Indication: Skin cosmetic procedure
     Dosage: DOSE NOT REPORTED
     Route: 065

REACTIONS (9)
  - Confusional state [Unknown]
  - Migraine [Unknown]
  - Encephalitis [Unknown]
  - Autoimmune disorder [Unknown]
  - Syncope [Unknown]
  - Pneumonia [Unknown]
  - Malaise [Unknown]
  - Blindness transient [Unknown]
  - Deafness [Unknown]

NARRATIVE: CASE EVENT DATE: 20141215
